FAERS Safety Report 16241208 (Version 1)
Quarter: 2019Q2

REPORT INFORMATION
  Report Type: Spontaneous
  Country: FR (occurrence: FR)
  Receive Date: 20190425
  Receipt Date: 20190425
  Transmission Date: 20190711
  Serious: Yes (Hospitalization, Other)
  Sender: FDA-Public Use
  Company Number: PHHY2018FR134490

PATIENT
  Sex: Female
  Weight: 47 kg

DRUGS (4)
  1. NINLARO [Suspect]
     Active Substance: IXAZOMIB CITRATE
     Indication: PLASMA CELL MYELOMA
     Dosage: 4 MG, UNK
     Route: 048
     Dates: start: 20180208
  2. DEXAMETHASONE. [Suspect]
     Active Substance: DEXAMETHASONE
     Indication: PLASMA CELL MYELOMA
     Dosage: UNK
     Route: 065
  3. PREVISCAN (FLUINDIONE) [Suspect]
     Active Substance: FLUINDIONE
     Indication: PLASMA CELL MYELOMA
     Dosage: UNK
     Route: 048
  4. REVLIMID [Suspect]
     Active Substance: LENALIDOMIDE
     Indication: PLASMA CELL MYELOMA
     Dosage: 40 MG, UNK
     Route: 065
     Dates: start: 20180208, end: 20180828

REACTIONS (22)
  - Skin turgor decreased [Recovered/Resolved]
  - Malaise [Recovered/Resolved]
  - Ejection fraction decreased [Recovered/Resolved]
  - Oedema [Recovered/Resolved]
  - Rectal haemorrhage [Recovered/Resolved]
  - Constipation [Unknown]
  - Cardiac arrest [Recovered/Resolved]
  - General physical health deterioration [Recovered/Resolved]
  - Diarrhoea [Recovered/Resolved]
  - Escherichia urinary tract infection [Recovered/Resolved]
  - Nausea [Not Recovered/Not Resolved]
  - Atrial fibrillation [Not Recovered/Not Resolved]
  - Septic shock [Recovered/Resolved]
  - Peripheral coldness [Recovered/Resolved]
  - Urinary tract infection [Recovered/Resolved]
  - Arthritis [Recovered/Resolved]
  - Heart sounds abnormal [Recovered/Resolved]
  - Hypokalaemia [Recovered/Resolved]
  - Pancytopenia [Not Recovered/Not Resolved]
  - Renal failure [Recovered/Resolved]
  - Thrombocytopenia [Recovered/Resolved]
  - Vision blurred [Recovered/Resolved]

NARRATIVE: CASE EVENT DATE: 20180208
